FAERS Safety Report 6774193-5 (Version None)
Quarter: 2010Q2

REPORT INFORMATION
  Report Type: 
  Country: None (occurrence: None)
  Receive Date: 20100616
  Receipt Date: 20100616
  Transmission Date: 20101027
  Serious: Yes (Other)
  Sender: FDA-Public Use
  Company Number: None

PATIENT
  Sex: Female

DRUGS (1)
  1. ORENCIA [Suspect]
     Indication: RHEUMATOID ARTHRITIS
     Dosage: 750NMG INDUCTION WK 0,2,4 IV; 750MG EVERY 4 WEEKS IV
     Route: 042
     Dates: start: 20100317, end: 20100616

REACTIONS (3)
  - MIGRAINE [None]
  - NAUSEA [None]
  - VOMITING [None]
